FAERS Safety Report 6537321-2 (Version None)
Quarter: 2010Q1

REPORT INFORMATION
  Report Type: 
  Country: None (occurrence: None)
  Receive Date: 20100107
  Receipt Date: 20091223
  Transmission Date: 20100710
  Serious: Yes (Hospitalization)
  Sender: FDA-Public Use
  Company Number: 2009AP005051

PATIENT
  Age: 70 Year
  Sex: Male

DRUGS (2)
  1. LAMOTRIGINE [Suspect]
     Indication: EPILEPSY
     Dosage: 200 MG;BID
  2. VALPROATE SODIUM [Concomitant]

REACTIONS (14)
  - ATAXIA [None]
  - CONFUSIONAL STATE [None]
  - COORDINATION ABNORMAL [None]
  - DRUG DISPENSING ERROR [None]
  - FEEDING DISORDER [None]
  - GASTROINTESTINAL HAEMORRHAGE [None]
  - GENERAL PHYSICAL HEALTH DETERIORATION [None]
  - HEADACHE [None]
  - MEDICATION ERROR [None]
  - MOBILITY DECREASED [None]
  - NYSTAGMUS [None]
  - TREMOR [None]
  - ULCER HAEMORRHAGE [None]
  - VISION BLURRED [None]
